FAERS Safety Report 8489921-0 (Version None)
Quarter: 2012Q3

REPORT INFORMATION
  Report Type: 
  Country: None (occurrence: None)
  Receive Date: 20120705
  Receipt Date: 20120702
  Transmission Date: 20120928
  Serious: Yes (Death, Hospitalization)
  Sender: FDA-Public Use
  Company Number: PHHY2012US056617

PATIENT
  Age: 88 Year
  Sex: Male

DRUGS (1)
  1. ALLOPURINOL [Suspect]

REACTIONS (6)
  - ELECTROLYTE DEPLETION [None]
  - DELIRIUM [None]
  - BLOOD PRESSURE INADEQUATELY CONTROLLED [None]
  - DEHYDRATION [None]
  - STEVENS-JOHNSON SYNDROME [None]
  - PAIN [None]
